FAERS Safety Report 20200504 (Version 1)
Quarter: 2021Q4

REPORT INFORMATION
  Report Type: Spontaneous
  Country: US (occurrence: None)
  Receive Date: 20211216
  Receipt Date: 20211216
  Transmission Date: 20220304
  Serious: No
  Sender: FDA-Public Use
  Company Number: None

PATIENT

DRUGS (2)
  1. ATENOLOL [Suspect]
     Active Substance: ATENOLOL
  2. BENZTROPINE MESYLATE [Suspect]
     Active Substance: BENZTROPINE MESYLATE

REACTIONS (2)
  - Product identification number issue [None]
  - Circumstance or information capable of leading to medication error [None]
